FAERS Safety Report 25479250 (Version 1)
Quarter: 2025Q2

REPORT INFORMATION
  Report Type: Spontaneous
  Country: US (occurrence: None)
  Receive Date: 20250625
  Receipt Date: 20250625
  Transmission Date: 20250717
  Serious: Yes (Hospitalization)
  Sender: FDA-CTU
  Company Number: None

PATIENT
  Age: 73 Year
  Sex: Female
  Weight: 40.5 kg

DRUGS (6)
  1. CEVIMELINE HYDROCHLORIDE [Suspect]
     Active Substance: CEVIMELINE HYDROCHLORIDE
     Indication: Dry mouth
     Dosage: FREQUENCY : 3 TIMES A DAY;?
     Route: 048
     Dates: start: 20250604, end: 20250605
  2. ESCITALOPRAM [Suspect]
     Active Substance: ESCITALOPRAM OXALATE
  3. PILOCARPINE [Concomitant]
     Active Substance: PILOCARPINE
  4. OLANZAPINE [Concomitant]
     Active Substance: OLANZAPINE
  5. Pramapexole [Concomitant]
  6. VILAZODONE [Concomitant]
     Active Substance: VILAZODONE

REACTIONS (1)
  - Catatonia [None]

NARRATIVE: CASE EVENT DATE: 20250605
